FAERS Safety Report 15386628 (Version 1)
Quarter: 2018Q3

REPORT INFORMATION
  Report Type: Report from Study
  Country: PE (occurrence: PE)
  Receive Date: 20180914
  Receipt Date: 20180914
  Transmission Date: 20181010
  Serious: Yes (Death, Hospitalization, Other)
  Sender: FDA-Public Use
  Company Number: PE-SA-2018SA173246

PATIENT
  Age: 50 Year
  Sex: Male

DRUGS (1)
  1. INSULIN GLARGINE [Suspect]
     Active Substance: INSULIN GLARGINE
     Indication: DIABETES MELLITUS
     Dosage: 10 IU, QD
     Route: 058
     Dates: start: 201712, end: 20180902

REACTIONS (12)
  - Haemoglobin decreased [Fatal]
  - Tuberculosis [Not Recovered/Not Resolved]
  - Nephrosclerosis [Fatal]
  - Infection [Unknown]
  - Blood creatinine increased [Fatal]
  - Fluid retention [Unknown]
  - Blood cholesterol [Unknown]
  - Immune system disorder [Fatal]
  - Pleural effusion [Fatal]
  - Swelling [Fatal]
  - Renal disorder [Unknown]
  - Coma [Unknown]

NARRATIVE: CASE EVENT DATE: 20180118
